FAERS Safety Report 9346311 (Version 1)
Quarter: 2013Q2

REPORT INFORMATION
  Report Type: Spontaneous
  Country: FR (occurrence: FR)
  Receive Date: 20130613
  Receipt Date: 20130613
  Transmission Date: 20140414
  Serious: Yes (Hospitalization, Other)
  Sender: FDA-Public Use
  Company Number: FR-ELI_LILLY_AND_COMPANY-FR201306000859

PATIENT
  Age: 41 Year
  Sex: Female

DRUGS (3)
  1. PROZAC [Suspect]
     Dosage: UNK, UNKNOWN
     Route: 048
     Dates: end: 200707
  2. JASMINE [Concomitant]
     Indication: CONTRACEPTION
     Dosage: UNK, UNKNOWN
     Dates: end: 20070725
  3. STILNOX [Concomitant]
     Dosage: UNK, UNKNOWN

REACTIONS (7)
  - Intracranial venous sinus thrombosis [Recovered/Resolved with Sequelae]
  - Pulmonary embolism [Unknown]
  - Grand mal convulsion [Recovered/Resolved]
  - Partial seizures with secondary generalisation [Recovered/Resolved]
  - Hyperhomocysteinaemia [Unknown]
  - Aphasia [Recovered/Resolved]
  - Methylenetetrahydrofolate reductase deficiency [Unknown]
